FAERS Safety Report 11363291 (Version 1)
Quarter: 2015Q3

REPORT INFORMATION
  Report Type: Spontaneous
  Country: US (occurrence: None)
  Receive Date: 20150810
  Receipt Date: 20150810
  Transmission Date: 20151125
  Serious: Yes (Hospitalization)
  Sender: FDA-Public Use
  Company Number: None

PATIENT
  Age: 73 Year
  Sex: Male
  Weight: 74.9 kg

DRUGS (3)
  1. METFORMIN HYDROCHLORIDE. [Suspect]
     Active Substance: METFORMIN HYDROCHLORIDE
     Dates: end: 20150618
  2. CARBOPLATIN. [Suspect]
     Active Substance: CARBOPLATIN
     Dates: end: 20150518
  3. TAXOL [Suspect]
     Active Substance: PACLITAXEL
     Dates: end: 20150518

REACTIONS (5)
  - Hypophagia [None]
  - Diarrhoea [None]
  - Syncope [None]
  - Dizziness postural [None]
  - Orthostatic hypotension [None]

NARRATIVE: CASE EVENT DATE: 20150618
